FAERS Safety Report 4660099-4 (Version None)
Quarter: 2005Q2

REPORT INFORMATION
  Report Type: 
  Country: None (occurrence: None)
  Receive Date: 20050510
  Receipt Date: 20050427
  Transmission Date: 20051028
  Serious: Yes (Other)
  Sender: FDA-Public Use
  Company Number: 2005068182

PATIENT
  Age: 52 Year
  Sex: Male

DRUGS (1)
  1. METHYLPREDNISOLONE SODIUM SUCCINATE [Suspect]
     Indication: ILL-DEFINED DISORDER
     Dosage: 200 MG (50 MG, 4 IN 1 D), INTRAVENOUS
     Route: 042

REACTIONS (17)
  - ABNORMAL BEHAVIOUR [None]
  - DELUSION OF GRANDEUR [None]
  - DISTURBANCE IN ATTENTION [None]
  - ELEVATED MOOD [None]
  - EUPHORIC MOOD [None]
  - EXCESSIVE SEXUAL FANTASIES [None]
  - GRANDIOSITY [None]
  - IDEAS OF REFERENCE [None]
  - INCOHERENT [None]
  - INSOMNIA [None]
  - JUDGEMENT IMPAIRED [None]
  - LOGORRHOEA [None]
  - LOOSE ASSOCIATIONS [None]
  - MANIA [None]
  - NEOLOGISM [None]
  - PRESSURE OF SPEECH [None]
  - SPEECH DISORDER [None]
